FAERS Safety Report 16474955 (Version 1)
Quarter: 2019Q2

REPORT INFORMATION
  Report Type: Report from Study
  Country: CA (occurrence: CA)
  Receive Date: 20190625
  Receipt Date: 20190625
  Transmission Date: 20190711
  Serious: Yes (Death)
  Sender: FDA-Public Use
  Company Number: CA-TAIHO ONCOLOGY  INC-EU-2019-02064

PATIENT
  Age: 72 Year
  Sex: Female
  Weight: 65.2 kg

DRUGS (10)
  1. LEVOTHYROXINE. [Concomitant]
     Active Substance: LEVOTHYROXINE
  2. VITAMIN D [Concomitant]
     Active Substance: VITAMIN D NOS
     Dosage: QD
  3. FERROUS GLUCONATE [Concomitant]
     Active Substance: FERROUS GLUCONATE
  4. GABAPENTIN. [Concomitant]
     Active Substance: GABAPENTIN
  5. STEMACIL [Concomitant]
  6. LONSURF [Suspect]
     Active Substance: TIPIRACIL HYDROCHLORIDE\TRIFLURIDINE
     Indication: COLORECTAL CANCER METASTATIC
     Dosage: CURRENT CYCLE 3 STARTED ON 27/MAY/2019.
     Route: 048
     Dates: start: 20190401
  7. NORVASC [Concomitant]
     Active Substance: AMLODIPINE BESYLATE
  8. CRESTOR [Concomitant]
     Active Substance: ROSUVASTATIN CALCIUM
  9. CENTRUM VITAMINS FOR WOMAN [Concomitant]
     Dosage: QD
  10. IMODIUM [Concomitant]
     Active Substance: LOPERAMIDE HYDROCHLORIDE

REACTIONS (1)
  - Death [Fatal]

NARRATIVE: CASE EVENT DATE: 20190608
